FAERS Safety Report 25630662 (Version 6)
Quarter: 2025Q4

REPORT INFORMATION
  Report Type: Spontaneous
  Country: US (occurrence: US)
  Receive Date: 20250801
  Receipt Date: 20251029
  Transmission Date: 20260117
  Serious: No
  Sender: ROCHE
  Company Number: US-ROCHE-10000347545

PATIENT
  Age: 53 Year
  Sex: Male
  Weight: 77.11 kg

DRUGS (3)
  1. ERIVEDGE [Suspect]
     Active Substance: VISMODEGIB
     Indication: Basal cell carcinoma
     Dosage: STRENGTH: 150 MG
     Route: 048
     Dates: start: 202506
  2. PREDNISONE [Concomitant]
     Active Substance: PREDNISONE
     Route: 048
  3. DRONABINOL [Concomitant]
     Active Substance: DRONABINOL
     Route: 048

REACTIONS (12)
  - Nausea [Not Recovered/Not Resolved]
  - Ageusia [Unknown]
  - Decreased appetite [Not Recovered/Not Resolved]
  - White blood cell count increased [Unknown]
  - Aspartate aminotransferase decreased [Unknown]
  - Blood glucose increased [Unknown]
  - Blood potassium increased [Unknown]
  - Lip ulceration [Unknown]
  - Fatigue [Not Recovered/Not Resolved]
  - Mental fatigue [Not Recovered/Not Resolved]
  - Depression [Unknown]
  - Muscle spasms [Unknown]
